FAERS Safety Report 9153093 (Version 1)
Quarter: 2013Q1

REPORT INFORMATION
  Report Type: Spontaneous
  Country: US (occurrence: US)
  Receive Date: 20130310
  Receipt Date: 20130310
  Transmission Date: 20140127
  Serious: No
  Sender: FDA-Public Use
  Company Number: US-009507513-1302USA013247

PATIENT
  Age: 55 Year
  Sex: Female

DRUGS (2)
  1. DULERA [Suspect]
     Indication: ASTHMA
     Dosage: 100MCG/5MCG, ONCE
     Route: 055
     Dates: start: 2012, end: 2012
  2. DULERA [Suspect]
     Dosage: 100MCG/5MCG, ONCE
     Route: 055

REACTIONS (1)
  - Tremor [Recovered/Resolved]
